FAERS Safety Report 7018025-9 (Version None)
Quarter: 2010Q3

REPORT INFORMATION
  Report Type: 
  Country: None (occurrence: None)
  Receive Date: 20100923
  Receipt Date: 20100907
  Transmission Date: 20110219
  Serious: Yes (Other)
  Sender: FDA-Public Use
  Company Number: ACO_02118_2010

PATIENT
  Sex: Female
  Weight: 74.8435 kg

DRUGS (6)
  1. AMPYRA [Suspect]
     Indication: GAIT DISTURBANCE
     Dosage: (10 MG BID ORAL)
     Route: 048
     Dates: start: 20100812, end: 20100820
  2. AMPYRA [Suspect]
     Indication: GAIT DISTURBANCE
     Dosage: (10 MG BID ORAL)
     Route: 048
     Dates: start: 20100827, end: 20100831
  3. TOPROL-XL [Concomitant]
  4. SYNTHROID [Concomitant]
  5. TRUSOPT [Concomitant]
  6. DITROPAN [Concomitant]

REACTIONS (4)
  - DYSPNOEA EXERTIONAL [None]
  - HYPERHIDROSIS [None]
  - INCORRECT DOSE ADMINISTERED [None]
  - TACHYCARDIA [None]
